FAERS Safety Report 8217941-X (Version None)
Quarter: 2012Q1

REPORT INFORMATION
  Report Type: 
  Country: None (occurrence: None)
  Receive Date: 20120319
  Receipt Date: 20120313
  Transmission Date: 20120608
  Serious: Yes (Hospitalization)
  Sender: FDA-Public Use
  Company Number: FR-BAYER-2012-025288

PATIENT
  Age: 83 Year
  Sex: Female

DRUGS (4)
  1. CIPROFLOXACIN [Suspect]
     Dosage: 250 MG, BID
     Route: 048
     Dates: start: 20120125, end: 20120208
  2. CEFTAZIDIME [Suspect]
     Dosage: 1 G, TID
     Route: 042
     Dates: start: 20120125, end: 20120208
  3. LASIX [Concomitant]
     Dosage: 40 MG, QD
     Route: 048
     Dates: end: 20120208
  4. AMLODIPINE BESYLATE [Concomitant]
     Dosage: UNK
     Dates: end: 20120208

REACTIONS (3)
  - CONFUSIONAL STATE [None]
  - ABNORMAL BEHAVIOUR [None]
  - ENCEPHALOPATHY [None]
